FAERS Safety Report 12817935 (Version 1)
Quarter: 2016Q4

REPORT INFORMATION
  Report Type: Spontaneous
  Country: US (occurrence: US)
  Receive Date: 20161006
  Receipt Date: 20161006
  Transmission Date: 20170207
  Serious: No
  Sender: FDA-Public Use
  Company Number: US-BAYER-2016-193282

PATIENT
  Age: 22 Year
  Sex: Male
  Weight: 72.56 kg

DRUGS (1)
  1. LOTRIMIN ULTRA [Suspect]
     Active Substance: BUTENAFINE HYDROCHLORIDE
     Indication: THERAPEUTIC SKIN CARE TOPICAL
     Dosage: UNK UNK, QD
     Route: 061
     Dates: start: 201609, end: 20161001

REACTIONS (1)
  - Drug ineffective [Unknown]
